FAERS Safety Report 16226403 (Version 1)
Quarter: 2019Q2

REPORT INFORMATION
  Report Type: Spontaneous
  Country: US (occurrence: US)
  Receive Date: 20190423
  Receipt Date: 20190423
  Transmission Date: 20190711
  Serious: No
  Sender: FDA-Public Use
  Company Number: US-DRREDDYS-USA/USA/18/0102604

PATIENT
  Age: 38 Year
  Sex: Female
  Weight: 88.6 kg

DRUGS (1)
  1. SILVER SULFADIAZINE. [Suspect]
     Active Substance: SILVER SULFADIAZINE
     Indication: PAIN IN EXTREMITY
     Route: 061
     Dates: start: 20180707

REACTIONS (2)
  - Product physical issue [Unknown]
  - Drug ineffective for unapproved indication [Unknown]
